FAERS Safety Report 4840345-4 (Version None)
Quarter: 2005Q4

REPORT INFORMATION
  Report Type: 
  Country: None (occurrence: None)
  Receive Date: 20051025
  Receipt Date: 20041101
  Transmission Date: 20060501
  Serious: Yes (Other)
  Sender: FDA-Public Use
  Company Number: 2004-03587

PATIENT
  Age: 45 Year
  Sex: Female

DRUGS (3)
  1. TUBERSOL [Suspect]
     Indication: IMMUNISATION
     Dosage: I. D.
     Route: 023
     Dates: start: 20040927
  2. COZAAR [Concomitant]
  3. NORVASC [Concomitant]

REACTIONS (5)
  - DRY SKIN [None]
  - INJECTION SITE ERYTHEMA [None]
  - INJECTION SITE HAEMORRHAGE [None]
  - INJECTION SITE PRURITUS [None]
  - INJECTION SITE REACTION [None]
